FAERS Safety Report 7069741-4 (Version None)
Quarter: 2010Q4

REPORT INFORMATION
  Report Type: 
  Country: None (occurrence: None)
  Receive Date: 20101028
  Receipt Date: 20100524
  Transmission Date: 20110411
  Serious: Yes (Other)
  Sender: FDA-Public Use
  Company Number: US-WYE-H15288910

PATIENT
  Age: 80 Year
  Sex: Female

DRUGS (13)
  1. AMIODARONE [Suspect]
     Indication: ATRIAL FIBRILLATION
     Route: 048
  2. AMIODARONE [Suspect]
  3. TELMISARTAN [Concomitant]
     Indication: HYPERTENSION
  4. LEVOTHYROXINE [Concomitant]
     Indication: HYPOTHYROIDISM
  5. LEVOTHYROXINE [Concomitant]
  6. WARFARIN SODIUM [Concomitant]
  7. RISPERIDONE [Concomitant]
     Dates: start: 20080101
  8. PREGABALIN [Concomitant]
     Dosage: TITRATED TO 150 MG TWICE DAILY
  9. FUROSEMIDE [Concomitant]
  10. METOPROLOL [Concomitant]
  11. AMLODIPINE [Concomitant]
     Indication: HYPERTENSION
  12. SERTRALINE HYDROCHLORIDE [Concomitant]
     Indication: DEPRESSION
     Dates: start: 20080101, end: 20080101
  13. SERTRALINE HYDROCHLORIDE [Concomitant]
     Dosage: TOTRATED UP TO 200 MG DAILY
     Dates: start: 20080101

REACTIONS (1)
  - DELIRIUM [None]
